FAERS Safety Report 9552952 (Version 1)
Quarter: 2013Q3

REPORT INFORMATION
  Report Type: Spontaneous
  Country: IT (occurrence: IT)
  Receive Date: 20130925
  Receipt Date: 20130925
  Transmission Date: 20140515
  Serious: Yes (Other)
  Sender: FDA-Public Use
  Company Number: IT-JNJFOC-20130913082

PATIENT
  Age: 29 Year
  Sex: Female
  Weight: 45 kg

DRUGS (1)
  1. RISPERDAL [Suspect]
     Indication: PRODUCT USED FOR UNKNOWN INDICATION
     Route: 065
     Dates: start: 20130921, end: 20130921

REACTIONS (2)
  - Self injurious behaviour [Unknown]
  - Tremor [Unknown]
